FAERS Safety Report 24554428 (Version 2)
Quarter: 2024Q4

REPORT INFORMATION
  Report Type: Other
  Country: NL (occurrence: NL)
  Receive Date: 20241028
  Receipt Date: 20241028
  Transmission Date: 20250114
  Serious: Yes (Hospitalization)
  Sender: STRIDES
  Company Number: None

PATIENT
  Age: 73 Year
  Sex: Female
  Weight: 71 kg

DRUGS (10)
  1. GABAPENTIN [Suspect]
     Active Substance: GABAPENTIN
     Indication: Pruritus
     Dosage: 1 X PER DAY 1 PIECE
     Route: 065
     Dates: start: 20240802, end: 20241004
  2. APIXABAN [Concomitant]
     Active Substance: APIXABAN
     Indication: Product used for unknown indication
     Dosage: TABLET, 5 MG (MILLIGRAM)
     Route: 065
  3. AZELASTINE HYDROCHLORIDE AND FLUTICASONE PROPIONATE [Concomitant]
     Active Substance: AZELASTINE HYDROCHLORIDE\FLUTICASONE PROPIONATE
     Indication: Product used for unknown indication
     Dosage: NASAL SPRAY, 137/50 ?G/DOSE (MICROGRAMS PER DOSE)
     Route: 065
  4. Beclometason/formoterol viatris [Concomitant]
     Indication: Product used for unknown indication
     Dosage: AEROSOL, 200/6 ?G/DOSE (MICROGRAMS PER DOSE)
     Route: 065
  5. COSMETICS [Concomitant]
     Active Substance: COSMETICS
     Indication: Product used for unknown indication
     Dosage: OINTMENT
     Route: 065
  6. DESOXIMETASONE [Concomitant]
     Active Substance: DESOXIMETASONE
     Indication: Product used for unknown indication
     Dosage: LINIMENT (EMULSION), 2.5 MG/G (MILLIGRAMS PER GRAM)
     Route: 065
  7. LEVOCETIRIZINE [Concomitant]
     Active Substance: LEVOCETIRIZINE
     Indication: Product used for unknown indication
     Dosage: FILM-COATED TABLET, 5 MG (MILLIGRAMS)
     Route: 065
  8. LEVOTHYROXINE [Concomitant]
     Active Substance: LEVOTHYROXINE
     Indication: Product used for unknown indication
     Dosage: CAPSULE, 100 ?G (MICROGRAM)
     Route: 065
  9. PANTOPRAZOLE [Concomitant]
     Active Substance: PANTOPRAZOLE
     Indication: Product used for unknown indication
     Dosage: TABLET 20 MG
     Route: 065
  10. SIMVASTATIN [Concomitant]
     Active Substance: SIMVASTATIN
     Indication: Product used for unknown indication
     Dosage: FILM-COATED TABLET, 20 MG (MILLIGRAMS)
     Route: 065

REACTIONS (1)
  - Purpura [Recovering/Resolving]
